FAERS Safety Report 18452274 (Version 1)
Quarter: 2020Q4

REPORT INFORMATION
  Report Type: Spontaneous
  Country: US (occurrence: US)
  Receive Date: 20201101
  Receipt Date: 20201101
  Transmission Date: 20210114
  Serious: Yes (Other)
  Sender: FDA-Public Use
  Company Number: None

PATIENT
  Age: 87 Year
  Sex: Female
  Weight: 55.8 kg

DRUGS (2)
  1. LEVOTHYROXINE. [Suspect]
     Active Substance: LEVOTHYROXINE
     Indication: HYPERTHYROIDISM
     Dosage: ?          QUANTITY:1 CAPSULE(S);?
     Route: 048
     Dates: end: 20201016
  2. EUTHYROX 88 MCG [Concomitant]

REACTIONS (5)
  - Recalled product [None]
  - Burning sensation [None]
  - Loss of consciousness [None]
  - Chest pain [None]
  - Pain in extremity [None]

NARRATIVE: CASE EVENT DATE: 20201013
